FAERS Safety Report 20376068 (Version 1)
Quarter: 2022Q1

REPORT INFORMATION
  Report Type: Spontaneous
  Country: US (occurrence: US)
  Receive Date: 20220125
  Receipt Date: 20220125
  Transmission Date: 20220423
  Serious: Yes (Other)
  Sender: FDA-Public Use
  Company Number: US-GLAXOSMITHKLINE-US2022GSK012826

PATIENT
  Sex: Female

DRUGS (14)
  1. ZANTAC [Suspect]
     Active Substance: RANITIDINE HYDROCHLORIDE
     Indication: Gastric ulcer
     Dosage: 25 MG, WE
     Route: 065
     Dates: start: 199403, end: 199907
  2. ZANTAC [Suspect]
     Active Substance: RANITIDINE HYDROCHLORIDE
     Indication: Gastrooesophageal reflux disease
     Dosage: 75 MG, WE
     Route: 065
     Dates: start: 199403, end: 199907
  3. ZANTAC [Suspect]
     Active Substance: RANITIDINE HYDROCHLORIDE
     Dosage: 150 MG, WE
     Route: 065
     Dates: start: 199403, end: 199907
  4. ZANTAC [Suspect]
     Active Substance: RANITIDINE HYDROCHLORIDE
     Indication: Gastric ulcer
     Dosage: 25 MG, WE
     Route: 065
     Dates: start: 199403, end: 199907
  5. ZANTAC [Suspect]
     Active Substance: RANITIDINE HYDROCHLORIDE
     Indication: Gastrooesophageal reflux disease
     Dosage: 75 MG, WE
     Route: 065
     Dates: start: 199403, end: 199907
  6. ZANTAC [Suspect]
     Active Substance: RANITIDINE HYDROCHLORIDE
     Dosage: 150 MG, WE
     Route: 065
     Dates: start: 199403, end: 199907
  7. RANITIDINE HYDROCHLORIDE [Suspect]
     Active Substance: RANITIDINE HYDROCHLORIDE
     Indication: Gastric ulcer
     Dosage: 25 MG/ML, WE
     Route: 065
     Dates: start: 199403, end: 199907
  8. RANITIDINE HYDROCHLORIDE [Suspect]
     Active Substance: RANITIDINE HYDROCHLORIDE
     Indication: Gastrooesophageal reflux disease
     Dosage: 50 MG/ML, WE
     Route: 065
     Dates: start: 199403, end: 199907
  9. RANITIDINE [Suspect]
     Active Substance: RANITIDINE
     Indication: Gastric ulcer
     Dosage: 25 MG, WE
     Route: 065
     Dates: start: 199403, end: 199907
  10. RANITIDINE [Suspect]
     Active Substance: RANITIDINE
     Indication: Gastrooesophageal reflux disease
     Dosage: 75 MG, WE
     Route: 065
     Dates: start: 199403, end: 199907
  11. RANITIDINE [Suspect]
     Active Substance: RANITIDINE
     Dosage: 150 MG, WE
     Route: 065
     Dates: start: 199403, end: 199907
  12. RANITIDINE [Suspect]
     Active Substance: RANITIDINE
     Indication: Gastric ulcer
     Dosage: 25 MG, WE
     Route: 065
     Dates: start: 199403, end: 199907
  13. RANITIDINE [Suspect]
     Active Substance: RANITIDINE
     Indication: Gastrooesophageal reflux disease
     Dosage: 75 MG, WE
     Route: 065
     Dates: start: 199403, end: 199907
  14. RANITIDINE [Suspect]
     Active Substance: RANITIDINE
     Dosage: 150 MG, WE
     Route: 065
     Dates: start: 199403, end: 199907

REACTIONS (1)
  - Breast cancer [Unknown]
